FAERS Safety Report 16705659 (Version 1)
Quarter: 2019Q3

REPORT INFORMATION
  Report Type: Spontaneous
  Country: US (occurrence: US)
  Receive Date: 20190628
  Receipt Date: 20190628
  Transmission Date: 20191004
  Serious: No
  Sender: FDA-Public Use
  Company Number: None

PATIENT
  Age: 73 Year
  Sex: Female

DRUGS (1)
  1. HUMIRA [Suspect]
     Active Substance: ADALIMUMAB
     Indication: RHEUMATOID ARTHRITIS
     Dosage: ?          OTHER FREQUENCY:EVERY14DAYS;?
     Route: 058
     Dates: start: 20181029, end: 201905

REACTIONS (3)
  - Therapy cessation [None]
  - Rash generalised [None]
  - Rash erythematous [None]

NARRATIVE: CASE EVENT DATE: 201905
